FAERS Safety Report 16780044 (Version 1)
Quarter: 2019Q3

REPORT INFORMATION
  Report Type: Spontaneous
  Country: US (occurrence: US)
  Receive Date: 20190717
  Receipt Date: 20190717
  Transmission Date: 20191005
  Serious: No
  Sender: FDA-Public Use
  Company Number: None

PATIENT
  Age: 52 Year
  Sex: Female

DRUGS (1)
  1. AVONEX [Suspect]
     Active Substance: INTERFERON BETA-1A
     Indication: MULTIPLE SCLEROSIS
     Dosage: ?          OTHER STRENGTH:30/0.5 UG/MG;?
     Route: 058
     Dates: start: 20180410

REACTIONS (3)
  - Needle issue [None]
  - Device malfunction [None]
  - Injection site extravasation [None]

NARRATIVE: CASE EVENT DATE: 20190706
